FAERS Safety Report 4811066-9 (Version None)
Quarter: 2005Q4

REPORT INFORMATION
  Report Type: 
  Country: None (occurrence: None)
  Receive Date: 20051025
  Receipt Date: 20051014
  Transmission Date: 20060501
  Serious: Yes (Hospitalization)
  Sender: FDA-Public Use
  Company Number: PHO-2005-033

PATIENT
  Sex: Female

DRUGS (1)
  1. PHOTOFRIN [Suspect]
     Indication: DYSPLASIA
     Dosage: 2 MG/KG

REACTIONS (1)
  - CARDIAC FAILURE CONGESTIVE [None]
